FAERS Safety Report 19210646 (Version 1)
Quarter: 2021Q2

REPORT INFORMATION
  Report Type: Spontaneous
  Country: US (occurrence: US)
  Receive Date: 20210503
  Receipt Date: 20210503
  Transmission Date: 20210717
  Serious: Yes (Hospitalization)
  Sender: FDA-Public Use
  Company Number: None

PATIENT
  Sex: Male

DRUGS (1)
  1. REBIF [Suspect]
     Active Substance: INTERFERON BETA-1A
     Indication: MULTIPLE SCLEROSIS
     Dosage: OTHER DOSE:44 MCG/0.5ML ;?
     Route: 058
     Dates: start: 20091124

REACTIONS (3)
  - Fall [None]
  - Head injury [None]
  - Hypertension [None]
